FAERS Safety Report 7656083-9 (Version None)
Quarter: 2011Q3

REPORT INFORMATION
  Report Type: 
  Country: None (occurrence: None)
  Receive Date: 20110804
  Receipt Date: 20110801
  Transmission Date: 20111222
  Serious: Yes (Life-Threatening, Hospitalization)
  Sender: FDA-Public Use
  Company Number: FR-ROCHE-793994

PATIENT
  Sex: Female

DRUGS (4)
  1. CLONAZEPAM [Suspect]
     Dosage: DOSE: 2.5 MG/ML
     Route: 048
     Dates: start: 20110708
  2. ACETAMINOPHEN AND TRAMADOL HCL [Suspect]
     Route: 048
     Dates: start: 20110703
  3. ESCITALOPRAM OXALATE [Suspect]
     Route: 048
     Dates: start: 20110703
  4. BACTRIM DS [Suspect]
     Route: 048
     Dates: start: 20110622, end: 20110717

REACTIONS (1)
  - TOXIC EPIDERMAL NECROLYSIS [None]
